FAERS Safety Report 7355607-9 (Version None)
Quarter: 2011Q1

REPORT INFORMATION
  Report Type: 
  Country: None (occurrence: None)
  Receive Date: 20110316
  Receipt Date: 20110314
  Transmission Date: 20110831
  Serious: Yes (Other)
  Sender: FDA-Public Use
  Company Number: D0070596A

PATIENT
  Age: 60 Year
  Sex: Male

DRUGS (1)
  1. ZEFFIX [Suspect]
     Dosage: 100MG UNKNOWN
     Route: 048
     Dates: start: 20010101

REACTIONS (1)
  - PANCYTOPENIA [None]
